FAERS Safety Report 18891405 (Version 1)
Quarter: 2021Q1

REPORT INFORMATION
  Report Type: Spontaneous
  Country: US (occurrence: US)
  Receive Date: 20210215
  Receipt Date: 20210215
  Transmission Date: 20210420
  Serious: No
  Sender: FDA-Public Use
  Company Number: US-CELLTRION INC.-2020US032319

PATIENT

DRUGS (13)
  1. LOSARTAN. [Concomitant]
     Active Substance: LOSARTAN
  2. TRUXIMA [Suspect]
     Active Substance: RITUXIMAB-ABBS
     Indication: MANTLE CELL LYMPHOMA
     Dosage: 789.8 MG
     Dates: start: 20200804, end: 20200826
  3. ATORVASTATIN [Concomitant]
     Active Substance: ATORVASTATIN
  4. MECLIZINE [Concomitant]
     Active Substance: MECLIZINE HYDROCHLORIDE
  5. ACYCLOVIR. [Concomitant]
     Active Substance: ACYCLOVIR
  6. KYTRIL [Concomitant]
     Active Substance: GRANISETRON HYDROCHLORIDE
  7. TRUXIMA [Suspect]
     Active Substance: RITUXIMAB-ABBS
     Dosage: PARTIAL DOSE/ABOUT 400 MG
     Dates: start: 20200826, end: 20200826
  8. METOPROLOL. [Concomitant]
     Active Substance: METOPROLOL
  9. IMBRUVICA [Concomitant]
     Active Substance: IBRUTINIB
  10. VENCLEXTA [Concomitant]
     Active Substance: VENETOCLAX
  11. CALQUENCE [Concomitant]
     Active Substance: ACALABRUTINIB
  12. ALLOPURINOL. [Concomitant]
     Active Substance: ALLOPURINOL
  13. ZOFRAN [Concomitant]
     Active Substance: ONDANSETRON HYDROCHLORIDE

REACTIONS (2)
  - Off label use [Unknown]
  - Infusion related hypersensitivity reaction [Unknown]

NARRATIVE: CASE EVENT DATE: 20200804
